FAERS Safety Report 7832908-9 (Version None)
Quarter: 2011Q4

REPORT INFORMATION
  Report Type: 
  Country: None (occurrence: None)
  Receive Date: 20111019
  Receipt Date: 20111005
  Transmission Date: 20120403
  Serious: Yes (Other)
  Sender: FDA-Public Use
  Company Number: US-006501

PATIENT
  Sex: Female
  Weight: 79.3795 kg

DRUGS (4)
  1. BRAVELLE [Suspect]
     Indication: IN VITRO FERTILISATION
     Dosage: (150 -0225 IU EVERYDAY (QD))
     Dates: start: 20091101, end: 20091123
  2. PRENATAL VITAMINS /01549301/ [Concomitant]
  3. MENOTROPINS [Suspect]
     Indication: IN VITRO FERTILISATION
     Dates: start: 20091101, end: 20091123
  4. PROGESTERONE [Concomitant]

REACTIONS (2)
  - MATERNAL EXPOSURE DURING PREGNANCY [None]
  - ABORTION SPONTANEOUS [None]
